FAERS Safety Report 5028785-4 (Version None)
Quarter: 2006Q2

REPORT INFORMATION
  Report Type: 
  Country: None (occurrence: None)
  Receive Date: 20060619
  Receipt Date: 20060606
  Transmission Date: 20061013
  Serious: Yes (Other)
  Sender: FDA-Public Use
  Company Number: US-AVENTIS-200615152US

PATIENT
  Age: 68 Year
  Sex: Female

DRUGS (11)
  1. KETEK [Suspect]
     Indication: BRONCHITIS
     Route: 048
     Dates: start: 20050119, end: 20050124
  2. AMARYL [Concomitant]
     Dosage: DOSE: UNK
  3. ACTON [Concomitant]
     Dosage: DOSE: UNK
  4. ALTACE [Concomitant]
     Dosage: DOSE: UNK
  5. SYNTHROID [Concomitant]
     Dosage: DOSE: UNK
  6. METFORMIN HCL [Concomitant]
     Dosage: DOSE: UNK
  7. EVISTA [Concomitant]
     Dosage: DOSE: UNK
  8. WELLBUTRIN [Concomitant]
     Dosage: DOSE: UNK
  9. MIRAPEX [Concomitant]
     Dosage: DOSE: UNK
  10. ADVAIR DISKUS 100/50 [Concomitant]
     Dosage: DOSE: UNK
  11. COMBIVENT [Concomitant]
     Dosage: DOSE: UNK

REACTIONS (4)
  - ALANINE AMINOTRANSFERASE INCREASED [None]
  - ASPARTATE AMINOTRANSFERASE INCREASED [None]
  - BLOOD ALKALINE PHOSPHATASE INCREASED [None]
  - HEPATIC ENZYME INCREASED [None]
